FAERS Safety Report 25044810 (Version 2)
Quarter: 2025Q1

REPORT INFORMATION
  Report Type: Spontaneous
  Country: ES (occurrence: ES)
  Receive Date: 20250306
  Receipt Date: 20250325
  Transmission Date: 20250408
  Serious: Yes (Other)
  Sender: TAKEDA
  Company Number: ES-AUROBINDO-AUR-APL-2025-009477

PATIENT
  Age: 6 Decade
  Sex: Female

DRUGS (7)
  1. MARIBAVIR [Suspect]
     Active Substance: MARIBAVIR
     Indication: Sarcoidosis
     Dosage: 800 MILLIGRAM, QD
  2. LEFLUNOMIDE [Suspect]
     Active Substance: LEFLUNOMIDE
     Indication: Sarcoidosis
  3. INFLIXIMAB [Suspect]
     Active Substance: INFLIXIMAB
     Indication: Sarcoidosis
     Dosage: 5 MILLIGRAM/KILOGRAM, Q4WEEKS
  4. HYDROXYCHLOROQUINE [Suspect]
     Active Substance: HYDROXYCHLOROQUINE
     Indication: Sarcoidosis
  5. GANCICLOVIR [Concomitant]
     Active Substance: GANCICLOVIR
     Indication: Sarcoidosis
     Dosage: 10 MILLIGRAM/KILOGRAM, QD
  6. IMMUNOGLOBULIN [Concomitant]
     Indication: Sarcoidosis
  7. FOSCARNET [Concomitant]
     Active Substance: FOSCARNET
     Indication: Sarcoidosis
     Dosage: 180 MILLIGRAM/KILOGRAM, QD

REACTIONS (3)
  - Cytomegalovirus infection [Unknown]
  - Opportunistic infection [Unknown]
  - Haemophagocytic lymphohistiocytosis [Unknown]
